FAERS Safety Report 6097729-9 (Version None)
Quarter: 2009Q1

REPORT INFORMATION
  Report Type: 
  Country: None (occurrence: None)
  Receive Date: 20090227
  Receipt Date: 20090224
  Transmission Date: 20090719
  Serious: Yes (Hospitalization)
  Sender: FDA-Public Use
  Company Number: DE-MERCK-0902DEU00354

PATIENT
  Age: 12 Year
  Sex: Female

DRUGS (2)
  1. SINGULAIR [Suspect]
     Indication: ASTHMA
     Route: 048
     Dates: start: 20081113
  2. BUDESONIDE AND FORMOTEROL FUMARATE [Concomitant]

REACTIONS (2)
  - INJECTION SITE HAEMATOMA [None]
  - SWELLING FACE [None]
